FAERS Safety Report 4980294-4 (Version None)
Quarter: 2006Q2

REPORT INFORMATION
  Report Type: 
  Country: None (occurrence: None)
  Receive Date: 20060424
  Receipt Date: 20060412
  Transmission Date: 20061013
  Serious: Yes (Hospitalization)
  Sender: FDA-Public Use
  Company Number: ABBOTT-06P-188-0330755-00

PATIENT
  Sex: Female

DRUGS (2)
  1. VALPROATE SODIUM [Suspect]
     Indication: BIPOLAR I DISORDER
     Route: 048
     Dates: start: 20050523, end: 20050907
  2. ARIPIPRAZOLE [Suspect]
     Indication: BIPOLAR I DISORDER
     Route: 048
     Dates: start: 20050727, end: 20050907

REACTIONS (5)
  - AKATHISIA [None]
  - BLEPHARITIS [None]
  - BRONCHOSPASM [None]
  - CONJUNCTIVITIS [None]
  - DEPRESSION [None]
